FAERS Safety Report 11828880 (Version 2)
Quarter: 2015Q4

REPORT INFORMATION
  Report Type: Spontaneous
  Country: US (occurrence: US)
  Receive Date: 20151211
  Receipt Date: 20151215
  Transmission Date: 20160305
  Serious: No
  Sender: FDA-Public Use
  Company Number: US-BAYER-2015-485721

PATIENT
  Age: 70 Year
  Sex: Female
  Weight: 59.86 kg

DRUGS (1)
  1. CLARITIN-D 12 HOUR [Suspect]
     Active Substance: LORATADINE\PSEUDOEPHEDRINE SULFATE
     Indication: MIDDLE EAR EFFUSION
     Dosage: 1 DF, BID
     Route: 048
     Dates: start: 20151206

REACTIONS (4)
  - Off label use [Unknown]
  - Feeling jittery [Recovered/Resolved]
  - Poor quality sleep [Recovered/Resolved]
  - Therapeutic response unexpected [Unknown]

NARRATIVE: CASE EVENT DATE: 20151206
